FAERS Safety Report 10054817 (Version 1)
Quarter: 2014Q2

REPORT INFORMATION
  Report Type: Spontaneous
  Country: US (occurrence: US)
  Receive Date: 20140402
  Receipt Date: 20140402
  Transmission Date: 20141212
  Serious: No
  Sender: FDA-Public Use
  Company Number: US-AMGEN-USASP2014023100

PATIENT
  Sex: 0

DRUGS (5)
  1. ENBREL [Suspect]
     Indication: PRODUCT USED FOR UNKNOWN INDICATION
     Dosage: UNK
     Route: 065
     Dates: start: 2009
  2. MTX                                /00113801/ [Suspect]
     Indication: PRODUCT USED FOR UNKNOWN INDICATION
     Dosage: UNK
     Route: 065
     Dates: start: 2009
  3. SULFASALAZINE [Concomitant]
     Dosage: UNK
     Dates: start: 2009
  4. MOBIC [Concomitant]
     Dosage: UNK
     Dates: start: 2009
  5. FOLIC ACID [Concomitant]
     Dosage: UNK
     Dates: start: 2009

REACTIONS (5)
  - Nausea [Unknown]
  - Arthralgia [Unknown]
  - Back pain [Unknown]
  - Alopecia [Unknown]
  - Dry skin [Unknown]
